FAERS Safety Report 19068026 (Version 2)
Quarter: 2024Q4

REPORT INFORMATION
  Report Type: Spontaneous
  Country: GB (occurrence: GB)
  Receive Date: 20210329
  Receipt Date: 20241014
  Transmission Date: 20250115
  Serious: Yes (Hospitalization, Other)
  Sender: MYLAN
  Company Number: GB-ORGANON-O2103GBR001753

PATIENT
  Age: 68 Year
  Sex: Male
  Weight: 90 kg

DRUGS (15)
  1. AMLODIPINE [Suspect]
     Active Substance: AMLODIPINE BESYLATE
     Indication: Hypertension
     Dosage: 10 MILLIGRAM, QD
     Route: 048
     Dates: start: 20170206, end: 20200601
  2. LOSARTAN [Suspect]
     Active Substance: LOSARTAN
     Indication: Hypertension
     Dosage: 100 MILLIGRAM, QD
     Route: 048
     Dates: start: 20191028, end: 20200601
  3. FUROSEMIDE [Suspect]
     Active Substance: FUROSEMIDE
     Indication: Ascites
     Dosage: 80 MILLIGRAM, QD
     Route: 048
     Dates: start: 20200506, end: 20200601
  4. BENDROFLUMETHIAZIDE [Suspect]
     Active Substance: BENDROFLUMETHIAZIDE
     Indication: Product used for unknown indication
     Dosage: UNK
     Route: 065
  5. LENVATINIB MESYLATE [Suspect]
     Active Substance: LENVATINIB MESYLATE
     Indication: Hepatocellular carcinoma
     Dosage: UNK (STARTING DOSE AT 12 MG QD, FLUCTUATED DOSAGE)
     Route: 048
     Dates: start: 20190514, end: 20200405
  6. LENVATINIB MESYLATE [Suspect]
     Active Substance: LENVATINIB MESYLATE
     Dosage: 8 MILLIGRAM, QD
     Route: 048
     Dates: start: 20200406, end: 20200406
  7. PEMBROLIZUMAB [Suspect]
     Active Substance: PEMBROLIZUMAB
     Indication: Hepatocellular carcinoma
     Dosage: UNK, Q3W (INFUSION VOLUME: 100 ML; ON DAY 1 OF EACH CYCLE EVERY THREE WEEKS (Q3W))
     Route: 042
     Dates: start: 20190514
  8. PEMBROLIZUMAB [Suspect]
     Active Substance: PEMBROLIZUMAB
     Dosage: UNK,Q3W (INFUSION VOLUME: 100 ML; ON DAY 1 OF EACH CYCLE EVERY THREE WEEKS (Q3W))
     Route: 042
     Dates: start: 20200324, end: 20200324
  9. SPIRONOLACTONE [Suspect]
     Active Substance: SPIRONOLACTONE
     Indication: Ascites
     Dosage: 100 MILLIGRAM, QD
     Route: 048
     Dates: start: 20200518, end: 20200601
  10. ASPIRIN [Concomitant]
     Active Substance: ASPIRIN
     Indication: Analgesic therapy
     Dosage: 75 MILLIGRAM, QD
     Route: 048
     Dates: start: 20180406
  11. CARVEDILOL [Concomitant]
     Active Substance: CARVEDILOL
     Indication: Hypertension
     Dosage: 25 MILLIGRAM, QD
     Route: 048
     Dates: start: 20190625
  12. CODEINE [Concomitant]
     Active Substance: CODEINE
     Indication: Diarrhoea
     Dosage: 30 MILLIGRAM, QID
     Route: 048
     Dates: start: 20200210
  13. LEVOTHYROXINE SODIUM [Concomitant]
     Active Substance: LEVOTHYROXINE SODIUM
     Indication: Product used for unknown indication
     Dosage: 75 MICROGRAM, QD
     Route: 048
     Dates: start: 20191118
  14. OMEPRAZOLE [Concomitant]
     Active Substance: OMEPRAZOLE
     Indication: Gastrooesophageal reflux disease
     Dosage: 20 MILLIGRAM, QD
     Route: 048
     Dates: start: 20161020
  15. SOOLANTRA [Concomitant]
     Active Substance: IVERMECTIN
     Indication: Rash
     Dosage: 1 PERCENT, QOD
     Route: 061
     Dates: start: 20191209

REACTIONS (4)
  - Acute kidney injury [Recovered/Resolved]
  - Ascites [Unknown]
  - Adverse event [Unknown]
  - Hypotension [Unknown]

NARRATIVE: CASE EVENT DATE: 20200414
